FAERS Safety Report 7797207-2 (Version None)
Quarter: 2011Q4

REPORT INFORMATION
  Report Type: 
  Country: None (occurrence: None)
  Receive Date: 20111005
  Receipt Date: 20110922
  Transmission Date: 20120403
  Serious: Yes (Hospitalization, Other)
  Sender: FDA-Public Use
  Company Number: PHHY2011JP82220

PATIENT
  Age: 48 Year
  Sex: Female

DRUGS (3)
  1. TEGRETOL [Suspect]
     Indication: TRIGEMINAL NEURALGIA
     Route: 048
     Dates: start: 20101201, end: 20101201
  2. MINOCYCLINE HCL [Concomitant]
     Indication: LYMPHADENOPATHY
     Dosage: UNK
     Dates: start: 20110312
  3. VALTREX [Concomitant]
     Dosage: UNK

REACTIONS (12)
  - RASH ERYTHEMATOUS [None]
  - BLOOD URINE PRESENT [None]
  - TUBULOINTERSTITIAL NEPHRITIS [None]
  - DRUG RASH WITH EOSINOPHILIA AND SYSTEMIC SYMPTOMS [None]
  - HUMAN HERPES VIRUS 6 SEROLOGY POSITIVE [None]
  - DRUG ERUPTION [None]
  - LYMPHADENOPATHY [None]
  - EOSINOPHILIA [None]
  - BLOOD CREATININE INCREASED [None]
  - PROTEIN URINE PRESENT [None]
  - LYMPHOCYTE MORPHOLOGY ABNORMAL [None]
  - HERPES ZOSTER [None]
